FAERS Safety Report 6693197-4 (Version None)
Quarter: 2010Q2

REPORT INFORMATION
  Report Type: 
  Country: None (occurrence: None)
  Receive Date: 20100421
  Receipt Date: 20100421
  Transmission Date: 20101027
  Serious: Yes (Other)
  Sender: FDA-Public Use
  Company Number: None

PATIENT
  Age: 69 Year
  Sex: Male
  Weight: 95.3 kg

DRUGS (2)
  1. CIPROFLOXACIN [Suspect]
     Indication: INFECTION PROPHYLAXIS
     Dosage: 400MG ONCE IV
     Route: 042
     Dates: start: 20100414, end: 20100414
  2. CIPROFLOXACIN [Suspect]
     Indication: SURGERY
     Dosage: 400MG ONCE IV
     Route: 042
     Dates: start: 20100414, end: 20100414

REACTIONS (2)
  - INFUSION RELATED REACTION [None]
  - RASH [None]
